FAERS Safety Report 15441778 (Version 2)
Quarter: 2018Q4

REPORT INFORMATION
  Report Type: Spontaneous
  Country: US (occurrence: US)
  Receive Date: 20180928
  Receipt Date: 20181029
  Transmission Date: 20190204
  Serious: Yes (Hospitalization)
  Sender: FDA-Public Use
  Company Number: US-LPDUSPRD-20181761

PATIENT
  Sex: Female

DRUGS (1)
  1. INJECTAFER [Suspect]
     Active Substance: FERRIC CARBOXYMALTOSE
     Dosage: 1 VIAL
     Route: 042
     Dates: start: 20180920

REACTIONS (2)
  - Seizure [Unknown]
  - Product quality issue [Unknown]

NARRATIVE: CASE EVENT DATE: 20180920
